FAERS Safety Report 5844329-9 (Version None)
Quarter: 2008Q3

REPORT INFORMATION
  Report Type: 
  Country: None (occurrence: None)
  Receive Date: 20080813
  Receipt Date: 20080812
  Transmission Date: 20090109
  Serious: Yes (Death)
  Sender: FDA-Public Use
  Company Number: BE-BOEHRINGER INGELHEIM GMBH, GERMANY-2008-BL-00164BL

PATIENT
  Sex: Male

DRUGS (1)
  1. MOBIC [Suspect]

REACTIONS (1)
  - DEATH [None]
